FAERS Safety Report 12244580 (Version 1)
Quarter: 2016Q2

REPORT INFORMATION
  Report Type: Spontaneous
  Country: US (occurrence: US)
  Receive Date: 20160407
  Receipt Date: 20160407
  Transmission Date: 20160815
  Serious: Yes (Other)
  Sender: FDA-Public Use
  Company Number: US-HOSPIRA-3231942

PATIENT
  Age: 71 Year
  Sex: Female
  Weight: 59.42 kg

DRUGS (2)
  1. AMOXICILLIN. [Suspect]
     Active Substance: AMOXICILLIN
     Indication: PRODUCT USED FOR UNKNOWN INDICATION
     Route: 048
     Dates: start: 20151109
  2. CEFTRIAXONE SODIUM. [Suspect]
     Active Substance: CEFTRIAXONE SODIUM
     Indication: PRODUCT USED FOR UNKNOWN INDICATION
     Route: 042

REACTIONS (7)
  - Glossodynia [Unknown]
  - Dry mouth [Unknown]
  - Oral discomfort [Unknown]
  - Weight decreased [Unknown]
  - Tongue discolouration [Unknown]
  - Decreased appetite [Unknown]
  - Malaise [Unknown]
